FAERS Safety Report 8098428-4 (Version None)
Quarter: 2012Q1

REPORT INFORMATION
  Report Type: 
  Country: None (occurrence: None)
  Receive Date: 20120131
  Receipt Date: 20120120
  Transmission Date: 20120608
  Serious: Yes (Hospitalization)
  Sender: FDA-Public Use
  Company Number: ES-JNJFOC-20120100377

PATIENT
  Sex: Male
  Weight: 87.1 kg

DRUGS (3)
  1. PALIPERIDONE PALMITATE [Suspect]
     Indication: SCHIZOPHRENIA
     Route: 030
     Dates: start: 20111004
  2. OLANZAPINE [Concomitant]
     Indication: SCHIZOPHRENIA
     Dates: start: 20110915
  3. DICLOFENAC [Concomitant]
     Indication: INJECTION SITE PAIN
     Dates: start: 20110911

REACTIONS (3)
  - PSYCHOTIC DISORDER [None]
  - DISEASE RECURRENCE [None]
  - SCHIZOPHRENIA [None]
